FAERS Safety Report 23904819 (Version 3)
Quarter: 2024Q2

REPORT INFORMATION
  Report Type: Spontaneous
  Country: GB (occurrence: GB)
  Receive Date: 20240527
  Receipt Date: 20240612
  Transmission Date: 20240716
  Serious: Yes (Hospitalization, Other)
  Sender: FDA-Public Use
  Company Number: GB-MHRA-ADR 28687613

PATIENT
  Age: 77 Year
  Sex: Female

DRUGS (40)
  1. ADCETRIS [Suspect]
     Active Substance: BRENTUXIMAB VEDOTIN
     Indication: Anaplastic large cell lymphoma T- and null-cell types
     Dosage: UNK; ;
     Route: 050
  2. BRENTUXIMAB [Suspect]
     Active Substance: BRENTUXIMAB
     Indication: Anaplastic large cell lymphoma T- and null-cell types
     Dosage: UNK; ;
     Route: 050
  3. BRENTUXIMAB VEDOTIN [Suspect]
     Active Substance: BRENTUXIMAB VEDOTIN
     Indication: Anaplastic large cell lymphoma T- and null-cell types
     Route: 065
  4. CANDESARTAN [Suspect]
     Active Substance: CANDESARTAN
     Indication: Anaplastic large cell lymphoma T- and null-cell types
     Dosage: UNK
     Route: 050
  5. CANDESARTAN [Suspect]
     Active Substance: CANDESARTAN
     Indication: Product used for unknown indication
     Dosage: UNK
     Route: 050
  6. CANDESARTAN [Suspect]
     Active Substance: CANDESARTAN
     Dosage: UNK
     Route: 065
  7. CYCLOPHOSPHAMIDE [Suspect]
     Active Substance: CYCLOPHOSPHAMIDE
     Dosage: 400 MILLIGRAM/SQ. METER;
     Route: 050
  8. CYCLOPHOSPHAMIDE [Suspect]
     Active Substance: CYCLOPHOSPHAMIDE
     Indication: Anaplastic large cell lymphoma T- and null-cell types
     Dosage: UNK; ;
     Route: 050
  9. DOXORUBICIN [Suspect]
     Active Substance: DOXORUBICIN
     Dosage: 25 MILLIGRAM/SQ. METER
     Route: 065
  10. DOXORUBICIN [Suspect]
     Active Substance: DOXORUBICIN
     Indication: Anaplastic large cell lymphoma T- and null-cell types
     Dosage: 25 MILLIGRAM/SQ. METER;
     Route: 050
  11. DOXORUBICIN [Suspect]
     Active Substance: DOXORUBICIN
     Indication: Anaplastic large cell lymphoma T- and null-cell types
     Dosage: UNK; ;
     Route: 050
  12. FUROSEMIDE [Suspect]
     Active Substance: FUROSEMIDE
     Dosage: UNK
     Route: 065
  13. FUROSEMIDE [Suspect]
     Active Substance: FUROSEMIDE
     Indication: Product used for unknown indication
     Dosage: UNK; ;
     Route: 050
  14. PREDNISOLONE [Suspect]
     Active Substance: PREDNISOLONE
     Dosage: UNK
     Route: 065
  15. PREDNISOLONE [Suspect]
     Active Substance: PREDNISOLONE
     Dosage: UNK
     Route: 065
  16. PREDNISOLONE [Suspect]
     Active Substance: PREDNISOLONE
     Indication: Product used for unknown indication
     Dosage: UNK; ;
     Route: 050
  17. PREDNISOLONE [Suspect]
     Active Substance: PREDNISOLONE
     Indication: Product used for unknown indication
     Dosage: UNK; ;
     Route: 050
  18. PREDNISONE [Suspect]
     Active Substance: PREDNISONE
     Indication: Anaplastic large cell lymphoma T- and null-cell types
     Dosage: UNK; ;
     Route: 065
  19. PREDNISONE [Suspect]
     Active Substance: PREDNISONE
     Indication: Anaplastic large cell lymphoma T- and null-cell types
     Dosage: UNK; ;
     Route: 050
  20. RAMIPRIL [Suspect]
     Active Substance: RAMIPRIL
     Dosage: UNK
     Route: 065
  21. RAMIPRIL [Suspect]
     Active Substance: RAMIPRIL
     Indication: Product used for unknown indication
     Dosage: UNK; ;
     Route: 050
  22. RAMIPRIL [Suspect]
     Active Substance: RAMIPRIL
     Dosage: UNK; ;
     Route: 050
  23. ALDOSTERONE [Concomitant]
     Active Substance: ALDOSTERONE
     Indication: Product used for unknown indication
     Dosage: 400 MILLIGRAM/SQ. METER
     Route: 050
  24. ALDOSTERONE [Concomitant]
     Active Substance: ALDOSTERONE
     Dosage: UNK
     Route: 065
  25. ALDOSTERONE [Concomitant]
     Active Substance: ALDOSTERONE
     Dosage: UNK; ;
     Route: 050
  26. CYCLOPHOSPHAMIDE [Concomitant]
     Active Substance: CYCLOPHOSPHAMIDE
     Dosage: 400 MILLIGRAM/SQ. METER
     Route: 065
  27. CYCLOPHOSPHAMIDE [Concomitant]
     Active Substance: CYCLOPHOSPHAMIDE
     Indication: Product used for unknown indication
     Dosage: 400 MILLIGRAM/SQ. METER;
     Route: 050
  28. CYCLOPHOSPHAMIDE [Concomitant]
     Active Substance: CYCLOPHOSPHAMIDE
     Dosage: 400 MILLIGRAM/SQ. METER;
     Route: 050
  29. CYCLOPHOSPHAMIDE [Concomitant]
     Active Substance: CYCLOPHOSPHAMIDE
     Route: 065
  30. CYCLOPHOSPHAMIDE [Concomitant]
     Active Substance: CYCLOPHOSPHAMIDE
     Route: 065
  31. CYCLOPHOSPHAMIDE [Concomitant]
     Active Substance: CYCLOPHOSPHAMIDE
     Route: 065
  32. DAPAGLIFLOZIN [Concomitant]
     Active Substance: DAPAGLIFLOZIN
     Dosage: UNK
     Route: 065
  33. DAPAGLIFLOZIN [Concomitant]
     Active Substance: DAPAGLIFLOZIN
     Indication: Product used for unknown indication
     Dosage: UNK; ;
     Route: 050
  34. DAPAGLIFLOZIN [Concomitant]
     Active Substance: DAPAGLIFLOZIN
     Dosage: UNK; ;
     Route: 050
  35. DOXORUBICIN [Concomitant]
     Active Substance: DOXORUBICIN
     Dosage: 25 MILLIGRAM/SQ. METER
     Route: 065
  36. DOXORUBICIN [Concomitant]
     Active Substance: DOXORUBICIN
     Indication: Product used for unknown indication
     Dosage: 25 MILLIGRAM/SQ. METER;
     Route: 050
  37. DOXORUBICIN [Concomitant]
     Active Substance: DOXORUBICIN
     Dosage: 25 MILLIGRAM/SQ. METER;
     Route: 050
  38. DOXORUBICIN [Concomitant]
     Active Substance: DOXORUBICIN
     Route: 065
  39. DOXORUBICIN [Concomitant]
     Active Substance: DOXORUBICIN
     Route: 065
  40. DOXORUBICIN [Concomitant]
     Active Substance: DOXORUBICIN
     Route: 065

REACTIONS (9)
  - C-reactive protein abnormal [Unknown]
  - Cellulitis [Recovered/Resolved]
  - Oedema peripheral [Recovering/Resolving]
  - Cardiac failure [Unknown]
  - Confusional state [Recovered/Resolved]
  - Dyspnoea exertional [Unknown]
  - Oedema peripheral [Unknown]
  - Dyspnoea [Unknown]
  - Off label use [Unknown]
